FAERS Safety Report 4427273-3 (Version None)
Quarter: 2004Q3

REPORT INFORMATION
  Report Type: 
  Country: None (occurrence: None)
  Receive Date: 20040811
  Receipt Date: 20040802
  Transmission Date: 20050211
  Serious: Yes (Hospitalization)
  Sender: FDA-Public Use
  Company Number: 2004-0007318

PATIENT
  Age: 57 Year
  Sex: Male
  Weight: 69 kg

DRUGS (11)
  1. EMTRIVA [Suspect]
     Indication: HIV INFECTION
  2. KALETRA [Suspect]
     Indication: HIV INFECTION
  3. TENOFOVIR (TENOFOVIR) [Concomitant]
  4. NITROGLYCERIN [Concomitant]
  5. BACTRIM [Concomitant]
  6. COUMADIN [Concomitant]
  7. PRAVACHOL [Concomitant]
  8. NEURONTIN [Concomitant]
  9. NEXIUM [Concomitant]
  10. IMODIUM [Concomitant]
  11. DIFLUCAN [Concomitant]

REACTIONS (24)
  - ACTIVATED PARTIAL THROMBOPLASTIN TIME PROLONGED [None]
  - AORTIC VALVE INCOMPETENCE [None]
  - BLOOD PRESSURE DECREASED [None]
  - BODY TEMPERATURE DECREASED [None]
  - CARDIAC DISORDER [None]
  - CHEST PAIN [None]
  - DYSPNOEA [None]
  - GASTRITIS [None]
  - GASTROINTESTINAL DISORDER [None]
  - GASTROOESOPHAGEAL REFLUX DISEASE [None]
  - HICCUPS [None]
  - INTERNATIONAL NORMALISED RATIO INCREASED [None]
  - MELAENA [None]
  - MITRAL VALVE CALCIFICATION [None]
  - MITRAL VALVE INCOMPETENCE [None]
  - NAUSEA [None]
  - NEUROPATHY PERIPHERAL [None]
  - OESOPHAGEAL HAEMORRHAGE [None]
  - PERICARDIAL EFFUSION [None]
  - PROTHROMBIN TIME PROLONGED [None]
  - RESPIRATORY RATE INCREASED [None]
  - TRICUSPID VALVE INCOMPETENCE [None]
  - VENTRICULAR DYSKINESIA [None]
  - VENTRICULAR HYPERTROPHY [None]
